FAERS Safety Report 19149404 (Version 6)
Quarter: 2021Q2

REPORT INFORMATION
  Report Type: Report from Study
  Country: KR (occurrence: KR)
  Receive Date: 20210416
  Receipt Date: 20210616
  Transmission Date: 20210717
  Serious: Yes (Death, Hospitalization, Other)
  Sender: FDA-Public Use
  Company Number: KR-BRISTOL-MYERS SQUIBB COMPANY-BMS-2021-036361

PATIENT
  Age: 55 Year
  Sex: Male
  Weight: 64 kg

DRUGS (9)
  1. ABSTRAL [Concomitant]
     Active Substance: FENTANYL CITRATE
     Indication: PRODUCT USED FOR UNKNOWN INDICATION
     Dosage: UNK
     Route: 048
     Dates: start: 20210203, end: 20210413
  2. GASTER [Concomitant]
     Active Substance: FAMOTIDINE
     Indication: PRODUCT USED FOR UNKNOWN INDICATION
     Dosage: 40 MILLIGRAM
     Route: 048
     Dates: start: 20210113, end: 20210413
  3. APETROL [MEGESTROL ACETATE] [Concomitant]
     Indication: PRODUCT USED FOR UNKNOWN INDICATION
     Dosage: UNK
     Route: 048
     Dates: start: 20210309, end: 20210413
  4. VIRREAL [Concomitant]
     Indication: PRODUCT USED FOR UNKNOWN INDICATION
     Dosage: UNK
     Route: 048
     Dates: start: 20210319, end: 20210413
  5. HARMONILAN [Concomitant]
     Indication: PRODUCT USED FOR UNKNOWN INDICATION
     Dosage: UNK
     Route: 048
     Dates: start: 20210309, end: 20210413
  6. NIVOLUMAB [Suspect]
     Active Substance: NIVOLUMAB
     Indication: HEPATOCELLULAR CARCINOMA
     Dosage: 59 MILLIGRAM
     Route: 042
     Dates: start: 20210114, end: 20210412
  7. IPILIMUMAB [Suspect]
     Active Substance: IPILIMUMAB
     Indication: HEPATOCELLULAR CARCINOMA
     Dosage: 177 MILLIGRAM
     Route: 042
     Dates: start: 20210114, end: 20210412
  8. DUROGESIC [Concomitant]
     Active Substance: FENTANYL
     Indication: PRODUCT USED FOR UNKNOWN INDICATION
     Dosage: UNK
     Route: 062
     Dates: start: 20210309, end: 20210413
  9. ULTRACET [Concomitant]
     Active Substance: ACETAMINOPHEN\TRAMADOL HYDROCHLORIDE
     Indication: PRODUCT USED FOR UNKNOWN INDICATION
     Dosage: UNK
     Route: 048
     Dates: start: 20210113, end: 20210413

REACTIONS (1)
  - Autoimmune hepatitis [Fatal]

NARRATIVE: CASE EVENT DATE: 20210412
